FAERS Safety Report 22068438 (Version 1)
Quarter: 2023Q1

REPORT INFORMATION
  Report Type: Spontaneous
  Country: FR (occurrence: FR)
  Receive Date: 20230307
  Receipt Date: 20230307
  Transmission Date: 20230417
  Serious: Yes (Other)
  Sender: FDA-Public Use
  Company Number: FR-Accord-302419

PATIENT
  Age: 61 Year
  Sex: Female

DRUGS (2)
  1. CARBOPLATIN [Suspect]
     Active Substance: CARBOPLATIN
     Indication: Adenocarcinoma
     Dosage: WEEKLY
     Dates: start: 20220622
  2. PACLITAXEL [Suspect]
     Active Substance: PACLITAXEL
     Indication: Adenocarcinoma
     Dosage: WEEKLY
     Dates: start: 20220622

REACTIONS (2)
  - Catheter site haematoma [Unknown]
  - Thrombotic microangiopathy [Unknown]

NARRATIVE: CASE EVENT DATE: 20220624
